FAERS Safety Report 11330474 (Version 2)
Quarter: 2015Q3

REPORT INFORMATION
  Report Type: Spontaneous
  Country: US (occurrence: US)
  Receive Date: 20150803
  Receipt Date: 20150929
  Transmission Date: 20151125
  Serious: Yes (Hospitalization, Other)
  Sender: FDA-Public Use
  Company Number: US-BAYER-2015-391518

PATIENT
  Age: 53 Year
  Sex: Male
  Weight: 113 kg

DRUGS (3)
  1. CIPRO [Suspect]
     Active Substance: CIPROFLOXACIN HYDROCHLORIDE
     Indication: INFECTION
     Dosage: UNK
     Dates: start: 2014
  2. CEFAZOLIN [Suspect]
     Active Substance: CEFAZOLIN
     Indication: LOCALISED INFECTION
     Dosage: 50 ML, Q8HR VIA IV PUMP
     Route: 042
     Dates: start: 2015, end: 20150913
  3. CEFOXIN [Suspect]
     Active Substance: CEFOXITIN SODIUM
     Indication: LOCALISED INFECTION
     Dosage: UNK
     Route: 065
     Dates: start: 2015, end: 2015

REACTIONS (11)
  - Peripheral swelling [None]
  - Withdrawal syndrome [Unknown]
  - Pain in extremity [Not Recovered/Not Resolved]
  - Drug hypersensitivity [Recovered/Resolved]
  - Blood pressure increased [Recovered/Resolved]
  - Irritability [Unknown]
  - Back pain [Not Recovered/Not Resolved]
  - Hypoaesthesia [Recovering/Resolving]
  - Angina pectoris [Recovering/Resolving]
  - Foot deformity [None]
  - Tremor [Recovering/Resolving]

NARRATIVE: CASE EVENT DATE: 2014
